FAERS Safety Report 26199993 (Version 1)
Quarter: 2025Q4

REPORT INFORMATION
  Report Type: Spontaneous
  Country: IR (occurrence: IR)
  Receive Date: 20251225
  Receipt Date: 20251225
  Transmission Date: 20260118
  Serious: Yes (Hospitalization, Disabling)
  Sender: BAUSCH AND LOMB
  Company Number: IR-BAUSCH-BH-2025-022747

PATIENT
  Sex: Male

DRUGS (5)
  1. DEXAMETHASONE [Suspect]
     Active Substance: DEXAMETHASONE
     Indication: Weight decreased
     Dosage: PATIENT HAD BEEN USING DEXAMETHASONE IRREGULARLY AND WITHOUT A MEDICAL PRESCRIPTION, SOMETIMES OMITT
     Route: 065
  2. DEXAMETHASONE [Suspect]
     Active Substance: DEXAMETHASONE
     Indication: Atrophy
  3. DEXAMETHASONE [Suspect]
     Active Substance: DEXAMETHASONE
     Indication: Skin hyperpigmentation
  4. BUPRENORPHINE [Concomitant]
     Active Substance: BUPRENORPHINE
     Indication: Product used for unknown indication
     Dosage: LAST USE: 1 YEAR AGO
  5. TRAMADOL [Concomitant]
     Active Substance: TRAMADOL
     Indication: Product used for unknown indication
     Dosage: LAST USE: 8 YEARS AGO

REACTIONS (4)
  - Osteonecrosis [Recovered/Resolved]
  - Major depression [Recovering/Resolving]
  - Intentional product misuse [Unknown]
  - Prescription drug used without a prescription [Unknown]
